FAERS Safety Report 21129449 (Version 1)
Quarter: 2022Q3

REPORT INFORMATION
  Report Type: Spontaneous
  Country: CA (occurrence: CA)
  Receive Date: 20220725
  Receipt Date: 20220725
  Transmission Date: 20221027
  Serious: Yes (Hospitalization, Other)
  Sender: FDA-Public Use
  Company Number: CA-JNJFOC-20220745705

PATIENT
  Age: 76 Year
  Sex: Female
  Weight: 57 kg

DRUGS (1)
  1. REMICADE [Suspect]
     Active Substance: INFLIXIMAB
     Indication: Product used for unknown indication
     Route: 041

REACTIONS (3)
  - Surgery [Not Recovered/Not Resolved]
  - Stenosis [Not Recovered/Not Resolved]
  - Immune system disorder [Not Recovered/Not Resolved]
